FAERS Safety Report 12370119 (Version 1)
Quarter: 2016Q2

REPORT INFORMATION
  Report Type: Spontaneous
  Country: US (occurrence: US)
  Receive Date: 20160516
  Receipt Date: 20160516
  Transmission Date: 20160815
  Serious: No
  Sender: FDA-Public Use
  Company Number: PHHY2016US066371

PATIENT
  Age: 67 Year
  Sex: Male

DRUGS (3)
  1. VOLTAREN [Suspect]
     Active Substance: DICLOFENAC SODIUM
     Indication: ARTHRITIS
  2. VOLTAREN [Suspect]
     Active Substance: DICLOFENAC SODIUM
     Indication: ROTATOR CUFF SYNDROME
  3. VOLTAREN [Suspect]
     Active Substance: DICLOFENAC SODIUM
     Indication: NERVE INJURY
     Route: 065

REACTIONS (4)
  - Product use issue [Unknown]
  - Expired product administered [Unknown]
  - Drug administered at inappropriate site [Unknown]
  - Wrong technique in product usage process [Unknown]
